FAERS Safety Report 10206925 (Version 1)
Quarter: 2014Q2

REPORT INFORMATION
  Report Type: Spontaneous
  Country: US (occurrence: US)
  Receive Date: 20140530
  Receipt Date: 20140530
  Transmission Date: 20141212
  Serious: No
  Sender: FDA-Public Use
  Company Number: US-MYLANLABS-2013S1028789

PATIENT
  Age: 51 Year
  Sex: Male
  Weight: 70.31 kg

DRUGS (2)
  1. CYCLOBENZAPRINE HYDROCHLORIDE TABLETS, USP [Suspect]
     Indication: BACK PAIN
     Route: 048
     Dates: start: 20131218, end: 20131218
  2. CYCLOBENZAPRINE HYDROCHLORIDE TABLETS, USP [Suspect]
     Indication: OFF LABEL USE
     Route: 048
     Dates: start: 20131218, end: 20131218

REACTIONS (3)
  - Headache [Recovered/Resolved]
  - Nausea [Recovered/Resolved]
  - Reaction to drug excipients [Recovered/Resolved]
